FAERS Safety Report 16330198 (Version 2)
Quarter: 2019Q2

REPORT INFORMATION
  Report Type: Spontaneous
  Country: FR (occurrence: FR)
  Receive Date: 20190520
  Receipt Date: 20190613
  Transmission Date: 20190711
  Serious: Yes (Hospitalization)
  Sender: FDA-Public Use
  Company Number: FR-ACCORD-128153

PATIENT
  Age: 95 Year
  Sex: Male

DRUGS (8)
  1. IRBESARTAN. [Suspect]
     Active Substance: IRBESARTAN
     Indication: HYPERTENSION
     Route: 048
  2. ELIQUIS [Suspect]
     Active Substance: APIXABAN
     Indication: CARDIOMYOPATHY
     Route: 048
     Dates: start: 20190225, end: 20190312
  3. GINKGO [Concomitant]
     Active Substance: GINKGO
  4. ENANTONE LP [Suspect]
     Active Substance: LEUPROLIDE ACETATE
     Indication: PRODUCT USED FOR UNKNOWN INDICATION
     Route: 048
     Dates: end: 20190216
  5. FERROPOLICHONDRUM [Suspect]
     Active Substance: CHONDROITIN SULFATE - IRON COLLOID
     Indication: PRODUCT USED FOR UNKNOWN INDICATION
     Route: 048
  6. DOLIPRANE [Suspect]
     Active Substance: ACETAMINOPHEN
     Indication: PAIN
     Route: 048
  7. CALCIDOSE VITAMINE D [Suspect]
     Active Substance: CALCIUM\CHOLECALCIFEROL
     Indication: HYPOVITAMINOSIS
     Dosage: ORAL POWDER
     Route: 048
  8. BICALUTAMIDE. [Suspect]
     Active Substance: BICALUTAMIDE
     Indication: PRODUCT USED FOR UNKNOWN INDICATION
     Route: 048

REACTIONS (1)
  - Thrombocytopenia [Not Recovered/Not Resolved]

NARRATIVE: CASE EVENT DATE: 20190306
